FAERS Safety Report 9117892 (Version 1)
Quarter: 2013Q1

REPORT INFORMATION
  Report Type: Report from Study
  Country: MX (occurrence: MX)
  Receive Date: 20130225
  Receipt Date: 20130225
  Transmission Date: 20140127
  Serious: Yes (Hospitalization)
  Sender: FDA-Public Use
  Company Number: MX-BRISTOL-MYERS SQUIBB COMPANY-15792419

PATIENT
  Age: 84 Year
  Sex: Male

DRUGS (3)
  1. IPILIMUMAB [Suspect]
     Indication: PROSTATE CANCER
     Dosage: 123 ML TOTAL DOSE
     Route: 042
     Dates: start: 20110503, end: 20110524
  2. DICLOFENAC [Concomitant]
     Dates: start: 20110428, end: 20110529
  3. PARACETAMOL [Concomitant]
     Dates: start: 20110428, end: 20110529

REACTIONS (2)
  - Ileitis [Recovered/Resolved with Sequelae]
  - Lower respiratory tract infection [Recovered/Resolved]
